FAERS Safety Report 13818981 (Version 1)
Quarter: 2017Q3

REPORT INFORMATION
  Report Type: Spontaneous
  Country: US (occurrence: US)
  Receive Date: 20170731
  Receipt Date: 20170731
  Transmission Date: 20171127
  Serious: No
  Sender: FDA-Public Use
  Company Number: None

PATIENT
  Age: 73 Year
  Sex: Female

DRUGS (1)
  1. FORTEO [Suspect]
     Active Substance: TERIPARATIDE

REACTIONS (4)
  - Wrong technique in product usage process [None]
  - Device malfunction [None]
  - Incorrect dose administered [None]
  - Accidental exposure to product [None]

NARRATIVE: CASE EVENT DATE: 20170731
